FAERS Safety Report 7141952-9 (Version None)
Quarter: 2010Q4

REPORT INFORMATION
  Report Type: 
  Country: None (occurrence: None)
  Receive Date: 20101207
  Receipt Date: 20101124
  Transmission Date: 20110411
  Serious: Yes (Hospitalization, Congenital Anomaly)
  Sender: FDA-Public Use
  Company Number: A0662872A

PATIENT
  Sex: Female

DRUGS (17)
  1. PAXIL [Suspect]
     Indication: DEPRESSION
     Dosage: 20MG PER DAY
     Dates: start: 20001226, end: 20010125
  2. P-EPHED/CPM [Concomitant]
     Dates: start: 20000101
  3. ALBUTEROL [Concomitant]
     Indication: ASTHMA
     Dates: start: 20000101
  4. SULFAMETHOXAZOL [Concomitant]
     Dates: start: 20000101
  5. METRONIDAZOLE [Concomitant]
     Dates: start: 20001206
  6. DICLOXACILLIN [Concomitant]
     Dates: start: 20010114
  7. GUAIFED [Concomitant]
     Dates: start: 20010126
  8. ZITHROMAX [Concomitant]
     Dates: start: 20010201
  9. ZOVIRAX [Concomitant]
     Dates: start: 20010218
  10. TRIMOX [Concomitant]
     Dates: start: 20010219
  11. PREDNISONE [Concomitant]
     Dates: start: 20000219
  12. PRENATAL VITAMINS [Concomitant]
     Indication: PREGNANCY
     Dates: start: 20010101
  13. CEPHALEXIN [Concomitant]
     Indication: INFECTION
     Dates: start: 20010801
  14. TYLENOL-500 [Concomitant]
  15. AMOXICILLIN [Concomitant]
     Indication: BRONCHITIS
     Dates: start: 20010201
  16. PROMETHAZINE [Concomitant]
  17. CLOTRIMAZOLE [Concomitant]

REACTIONS (15)
  - ATRIAL SEPTAL DEFECT [None]
  - COGNITIVE DISORDER [None]
  - DEAFNESS [None]
  - DEVELOPMENTAL DELAY [None]
  - DRUG EXPOSURE DURING PREGNANCY [None]
  - DYSMORPHISM [None]
  - EAR MALFORMATION [None]
  - HEART VALVE INCOMPETENCE [None]
  - LEFT ATRIAL DILATATION [None]
  - MITRAL VALVE INCOMPETENCE [None]
  - MULTIPLE CONGENITAL ABNORMALITIES [None]
  - PULMONARY VALVE INCOMPETENCE [None]
  - SPEECH DISORDER DEVELOPMENTAL [None]
  - TRICUSPID VALVE INCOMPETENCE [None]
  - VENTRICULAR SEPTAL DEFECT [None]
